FAERS Safety Report 10252553 (Version 1)
Quarter: 2014Q2

REPORT INFORMATION
  Report Type: Spontaneous
  Country: FR (occurrence: FR)
  Receive Date: 20140623
  Receipt Date: 20140623
  Transmission Date: 20141212
  Serious: Yes (Death, Hospitalization, Other)
  Sender: FDA-Public Use
  Company Number: PHHY2014FR076558

PATIENT
  Age: 43 Year
  Sex: Male

DRUGS (17)
  1. CICLOSPORIN [Suspect]
     Indication: IMMUNOSUPPRESSION
     Dosage: 175 MG, BID
  2. CICLOSPORIN [Suspect]
     Dosage: 110 MG, BID
  3. CICLOSPORIN [Suspect]
     Dosage: 100 MG, BID
  4. CICLOSPORIN [Suspect]
     Dosage: 75 MG, BID
  5. PREDNISONE [Suspect]
     Indication: IMMUNOSUPPRESSION
     Dosage: 20 MG, DAILY
  6. PREDNISONE [Suspect]
     Dosage: 5 MG, DAILY
  7. PREDNISONE [Suspect]
     Dosage: 5 MG, BID
  8. MYCOPHENOLATE [Suspect]
     Indication: IMMUNOSUPPRESSION
     Dosage: 1000 MG, BID
  9. MYCOPHENOLATE [Suspect]
     Dosage: 1000 MG, BID
  10. MYCOPHENOLATE [Suspect]
     Dosage: 500 MG, BID
  11. METHYLPREDNISOLONE [Suspect]
  12. BORTEZOMIB [Suspect]
     Indication: POST TRANSPLANT LYMPHOPROLIFERATIVE DISORDER
  13. CYCLOPHOSPHAMIDE [Suspect]
  14. DEXAMETHASONE [Suspect]
     Indication: POST TRANSPLANT LYMPHOPROLIFERATIVE DISORDER
  15. DEXAMETHASONE [Suspect]
     Indication: PLASMA CELL MYELOMA RECURRENT
  16. LENALIDOMIDE [Suspect]
     Indication: PLASMA CELL MYELOMA RECURRENT
  17. ANTILYMPHOCYTE SERUM [Suspect]
     Indication: IMMUNOSUPPRESSION

REACTIONS (18)
  - Septic shock [Fatal]
  - Kidney transplant rejection [Unknown]
  - Monoclonal gammopathy [Unknown]
  - Hypogammaglobulinaemia [Unknown]
  - Hypoalbuminaemia [Unknown]
  - Nephrotic syndrome [Unknown]
  - Renal impairment [Unknown]
  - Herpes zoster [Unknown]
  - Herpes zoster oticus [Unknown]
  - Weight decreased [Unknown]
  - Productive cough [Unknown]
  - Plasma cell myeloma [Unknown]
  - Epstein-Barr virus infection [Unknown]
  - Cytomegalovirus infection [Unknown]
  - Post transplant lymphoproliferative disorder [Unknown]
  - Plasma cell myeloma recurrent [Unknown]
  - Aplasia [Unknown]
  - General physical health deterioration [Unknown]
